FAERS Safety Report 8886987 (Version 1)
Quarter: 2012Q4

REPORT INFORMATION
  Report Type: Report from Study
  Country: US (occurrence: US)
  Receive Date: 20121105
  Receipt Date: 20121105
  Transmission Date: 20130627
  Serious: Yes (Hospitalization)
  Sender: FDA-Public Use
  Company Number: US-ASTRAZENECA-2012SE78554

PATIENT
  Age: 24745 Day
  Sex: Male

DRUGS (8)
  1. AZD6140 [Suspect]
     Indication: CORONARY ARTERY DISEASE
     Route: 048
     Dates: start: 20110714, end: 20121005
  2. ASPIRIN [Suspect]
     Route: 048
     Dates: start: 20110713
  3. NITROGLYCERIN [Concomitant]
     Indication: ANGINA PECTORIS
     Dosage: AS NEEDED
     Route: 060
  4. RANITIDINE [Concomitant]
     Indication: GASTROOESOPHAGEAL REFLUX DISEASE
     Route: 048
  5. CRESTOR [Concomitant]
     Indication: HYPERCHOLESTEROLAEMIA
     Route: 048
  6. CARVEDILOL [Concomitant]
     Indication: CARDIAC DISORDER
     Route: 048
  7. METFORMIN [Concomitant]
     Indication: TYPE 2 DIABETES MELLITUS
     Route: 048
  8. XANAX [Concomitant]
     Indication: DEPRESSION
     Route: 048
     Dates: start: 20111116

REACTIONS (1)
  - Benign prostatic hyperplasia [Recovered/Resolved]
